FAERS Safety Report 5620529-8 (Version None)
Quarter: 2008Q1

REPORT INFORMATION
  Report Type: 
  Country: None (occurrence: None)
  Receive Date: 20080208
  Receipt Date: 20080206
  Transmission Date: 20080703
  Serious: Yes (Life-Threatening, Hospitalization)
  Sender: FDA-Public Use
  Company Number: ES-BOEHRINGER INGELHEIM GMBH, GERMANY-2002-BP-06447BP

PATIENT
  Sex: Male
  Weight: 89 kg

DRUGS (13)
  1. MICARDIS [Suspect]
     Indication: CARDIOVASCULAR DISORDER
     Route: 048
     Dates: start: 20021004, end: 20021216
  2. MICARDIS [Suspect]
     Indication: CEREBROVASCULAR ACCIDENT PROPHYLAXIS
  3. RAMIPRIL [Suspect]
     Indication: CARDIOVASCULAR DISORDER
     Route: 048
     Dates: start: 20021004, end: 20021216
  4. RAMIPRIL [Suspect]
     Indication: CEREBROVASCULAR ACCIDENT PROPHYLAXIS
  5. GEMFIBROZIL [Concomitant]
  6. TAMSULOSIN HCL [Concomitant]
  7. AMLODIPINE [Concomitant]
  8. ASPIRIN [Concomitant]
  9. ATENOLOL [Concomitant]
  10. OMEPRAZOLE [Concomitant]
  11. ATORVASTATIN CALCIUM [Concomitant]
  12. TROSPIO CHLORIDE [Concomitant]
  13. PREDNISONE TAB [Concomitant]

REACTIONS (1)
  - THROMBOCYTOPENIA [None]
